FAERS Safety Report 8556013-1 (Version None)
Quarter: 2012Q3

REPORT INFORMATION
  Report Type: 
  Country: None (occurrence: None)
  Receive Date: 20120719
  Receipt Date: 20120709
  Transmission Date: 20120928
  Serious: Yes (Hospitalization, Other)
  Sender: FDA-Public Use
  Company Number: 2012MA008476

PATIENT
  Age: 67 Year
  Sex: Female

DRUGS (1)
  1. LIDOCAINE [Suspect]
     Indication: LOCAL ANAESTHESIA
     Dosage: XL
     Route: 061

REACTIONS (5)
  - SKIN NECROSIS [None]
  - TACHYPNOEA [None]
  - PSEUDOMONAS INFECTION [None]
  - HYPERSENSITIVITY [None]
  - CHILLS [None]
